FAERS Safety Report 10761348 (Version 1)
Quarter: 2015Q1

REPORT INFORMATION
  Report Type: Spontaneous
  Country: US (occurrence: None)
  Receive Date: 20150203
  Receipt Date: 20150203
  Transmission Date: 20150721
  Serious: No
  Sender: FDA-Public Use
  Company Number: None

PATIENT
  Age: 16 Year
  Sex: Male
  Weight: 108.86 kg

DRUGS (1)
  1. CLARAVIS [Suspect]
     Active Substance: ISOTRETINOIN
     Indication: ACNE
     Route: 048
     Dates: start: 20150116, end: 20150202

REACTIONS (6)
  - Feeling abnormal [None]
  - Dyspnoea [None]
  - Oropharyngeal pain [None]
  - Fatigue [None]
  - Muscular weakness [None]
  - Influenza like illness [None]

NARRATIVE: CASE EVENT DATE: 20150128
